FAERS Safety Report 6743820-0 (Version None)
Quarter: 2010Q2

REPORT INFORMATION
  Report Type: 
  Country: None (occurrence: None)
  Receive Date: 20100527
  Receipt Date: 20100205
  Transmission Date: 20101027
  Serious: No
  Sender: FDA-Public Use
  Company Number: US-KINGPHARMUSA00001-K201000144

PATIENT
  Sex: Female
  Weight: 72.562 kg

DRUGS (8)
  1. FLECTOR [Suspect]
     Indication: BACK INJURY
     Dosage: 1 PATCH, SINGLE
     Route: 061
     Dates: start: 20100204, end: 20100204
  2. FLECTOR [Suspect]
     Indication: PAIN
  3. PRILOSEC [Concomitant]
     Indication: GASTROINTESTINAL ULCER
     Dosage: UNK
  4. SYNTHROID [Concomitant]
     Indication: THYROID DISORDER
     Dosage: UNK
  5. CELEXA [Concomitant]
     Indication: AGITATION
     Dosage: UNK
  6. TRIAMTERENE AND HYDROCHLOROTHIAZIDE [Concomitant]
     Indication: VERTIGO
     Dosage: UNK
  7. VICODIN [Concomitant]
     Indication: PAIN
     Dosage: UNK
  8. AMBIEN CR [Concomitant]
     Indication: SLEEP DISORDER
     Dosage: UNK

REACTIONS (2)
  - DRUG INEFFECTIVE [None]
  - PRURITUS GENERALISED [None]
